FAERS Safety Report 19190888 (Version 1)
Quarter: 2021Q2

REPORT INFORMATION
  Report Type: Spontaneous
  Country: US (occurrence: US)
  Receive Date: 20210428
  Receipt Date: 20210428
  Transmission Date: 20210717
  Serious: Yes (Life-Threatening, Hospitalization)
  Sender: FDA-Public Use
  Company Number: None

PATIENT
  Age: 15 Year
  Sex: Male
  Weight: 77.2 kg

DRUGS (4)
  1. BENEFIX [Suspect]
     Active Substance: COAGULATION FACTOR IX RECOMBINANT HUMAN\ISOPROPYL ALCOHOL
     Indication: FACTOR IX DEFICIENCY
     Route: 042
     Dates: start: 20210314, end: 20210314
  2. TRANEXAMIC ACID. [Concomitant]
     Active Substance: TRANEXAMIC ACID
  3. ALPROLIX [Suspect]
     Active Substance: EFTRENONACOG ALFA
     Indication: FACTOR IX DEFICIENCY
     Route: 042
     Dates: start: 20210304, end: 20210314
  4. HUMATE?P [Concomitant]
     Active Substance: HUMAN COAGULATION FACTOR VIII/VON WILLEBRAND FACTOR COMPLEX

REACTIONS (14)
  - Tongue oedema [None]
  - Pharyngeal oedema [None]
  - Tonsillar haemorrhage [None]
  - Coagulation factor IX level decreased [None]
  - Swollen tongue [None]
  - Angioedema [None]
  - Anaphylactic reaction [None]
  - Drug hypersensitivity [None]
  - Post procedural haemorrhage [None]
  - Impaired healing [None]
  - Pruritus [None]
  - Haemoptysis [None]
  - Palatal oedema [None]
  - Dysphagia [None]

NARRATIVE: CASE EVENT DATE: 20210311
